FAERS Safety Report 5214698-1 (Version None)
Quarter: 2006Q4

REPORT INFORMATION
  Report Type: 
  Country: None (occurrence: None)
  Receive Date: 20061107
  Receipt Date: 20060817
  Transmission Date: 20070319
  Serious: No
  Sender: FDA-Public Use
  Company Number: 200615111BWH

PATIENT
  Age: 74 Year
  Sex: Male

DRUGS (1)
  1. LEVITRA [Suspect]
     Dosage: 20 MG, TOTAL DAILY, ORAL
     Route: 048

REACTIONS (4)
  - ERECTILE DYSFUNCTION [None]
  - INSOMNIA [None]
  - LIBIDO INCREASED [None]
  - PSYCHOMOTOR HYPERACTIVITY [None]
